FAERS Safety Report 19025311 (Version 1)
Quarter: 2021Q1

REPORT INFORMATION
  Report Type: Spontaneous
  Country: US (occurrence: US)
  Receive Date: 20210318
  Receipt Date: 20210318
  Transmission Date: 20210420
  Serious: Yes (Other)
  Sender: FDA-Public Use
  Company Number: None

PATIENT
  Age: 60 Year
  Sex: Female
  Weight: 63 kg

DRUGS (1)
  1. NIGHT TIME COLD AND FLU RELIEF MULTI SYMPTOM [Suspect]
     Active Substance: ACETAMINOPHEN\DEXTROMETHORPHAN HYDROBROMIDE\DOXYLAMINE SUCCINATE
     Indication: HEADACHE
     Dosage: ?          QUANTITY:2 CAPSULE(S);?
     Route: 048
     Dates: start: 20210315, end: 20210315

REACTIONS (3)
  - Loss of consciousness [None]
  - Malaise [None]
  - Delirium [None]

NARRATIVE: CASE EVENT DATE: 20210316
